FAERS Safety Report 18306352 (Version 2)
Quarter: 2021Q4

REPORT INFORMATION
  Report Type: Spontaneous
  Country: US (occurrence: US)
  Receive Date: 20200924
  Receipt Date: 20211109
  Transmission Date: 20220303
  Serious: Yes (Other)
  Sender: FDA-Public Use
  Company Number: US-SA-2020SA258371

PATIENT

DRUGS (2)
  1. ZANTAC [Suspect]
     Active Substance: RANITIDINE HYDROCHLORIDE
     Dosage: UNK
     Route: 048
     Dates: start: 2003, end: 2019
  2. ASPIRIN [Concomitant]
     Active Substance: ASPIRIN
     Dosage: 81 MG, QD

REACTIONS (4)
  - Non-Hodgkin^s lymphoma [Unknown]
  - Cardiac failure congestive [Unknown]
  - Anxiety [Unknown]
  - Injury [Unknown]

NARRATIVE: CASE EVENT DATE: 20160101
